FAERS Safety Report 9406807 (Version 2)
Quarter: 2013Q3

REPORT INFORMATION
  Report Type: Report from Study
  Country: US (occurrence: US)
  Receive Date: 20130718
  Receipt Date: 20130723
  Transmission Date: 20140515
  Serious: Yes (Hospitalization)
  Sender: FDA-Public Use
  Company Number: PHHO2013US008369

PATIENT
  Age: 49 Year
  Sex: Male
  Weight: 72.3 kg

DRUGS (7)
  1. TASIGNA [Suspect]
     Indication: LEUKAEMIA
     Dosage: 600 MG, QD
     Route: 048
     Dates: start: 20130321
  2. VALTREX [Concomitant]
     Indication: CYTOMEGALOVIRUS INFECTION
     Dosage: 500 MG, UNK
     Dates: start: 201304
  3. HYDRALAZINE [Concomitant]
     Indication: HYPERTENSION
     Dosage: 25 MG, (4 TIMES IN A DAY)
     Dates: start: 20130703
  4. METOPROLOL [Concomitant]
     Indication: HYPERTENSION
     Dosage: 75 MG, BID
     Dates: start: 20130703
  5. LISINOPRIL [Concomitant]
     Indication: HYPERTENSION
     Dosage: 5 MG, QD
     Dates: start: 20130703
  6. CLONIDINE [Concomitant]
     Indication: HYPERTENSION
     Dosage: UNK
     Dates: start: 20130703
  7. PREDNISONE [Concomitant]
     Indication: GRAFT VERSUS HOST DISEASE
     Dosage: 70 MG, QD
     Dates: start: 20130504

REACTIONS (2)
  - Fungal oesophagitis [Recovered/Resolved]
  - Encephalopathy [Recovering/Resolving]
